FAERS Safety Report 6139219-0 (Version None)
Quarter: 2009Q2

REPORT INFORMATION
  Report Type: 
  Country: None (occurrence: None)
  Receive Date: 20090401
  Receipt Date: 20090320
  Transmission Date: 20091009
  Serious: Yes (Congenital Anomaly)
  Sender: FDA-Public Use
  Company Number: CH-PFIZER INC-2008023268

PATIENT

DRUGS (5)
  1. ALDACTONE [Suspect]
     Route: 064
     Dates: end: 20080121
  2. ATENOLOL [Suspect]
     Indication: ESSENTIAL HYPERTENSION
     Route: 064
     Dates: end: 20080121
  3. LISINOPRIL [Suspect]
     Indication: ESSENTIAL HYPERTENSION
     Route: 064
  4. COSAAR PLUS [Suspect]
     Indication: ESSENTIAL HYPERTENSION
     Dosage: 25MG/100MG DAILY
     Route: 064
  5. ASPIRIN [Suspect]
     Indication: ESSENTIAL HYPERTENSION
     Route: 064
     Dates: end: 20080121

REACTIONS (2)
  - DRUG EXPOSURE DURING PREGNANCY [None]
  - RENAL FAILURE [None]
